FAERS Safety Report 14154234 (Version 3)
Quarter: 2018Q1

REPORT INFORMATION
  Report Type: Spontaneous
  Country: JP (occurrence: JP)
  Receive Date: 20171102
  Receipt Date: 20180130
  Transmission Date: 20180508
  Serious: Yes (Other)
  Sender: FDA-Public Use
  Company Number: JP-ELI_LILLY_AND_COMPANY-JP201710012876

PATIENT
  Age: 83 Year
  Sex: Male

DRUGS (1)
  1. ZALUTIA 2.5MG [Suspect]
     Active Substance: TADALAFIL
     Indication: PRODUCT USED FOR UNKNOWN INDICATION
     Dosage: 2.5 MG, DAILY
     Route: 048
     Dates: start: 20170526, end: 20170915

REACTIONS (2)
  - Visual field defect [Recovered/Resolved]
  - Hypoacusis [Recovered/Resolved]
